FAERS Safety Report 4530223-2 (Version None)
Quarter: 2004Q4

REPORT INFORMATION
  Report Type: 
  Country: None (occurrence: None)
  Receive Date: 20041215
  Receipt Date: 20041202
  Transmission Date: 20050328
  Serious: Yes (Hospitalization)
  Sender: FDA-Public Use
  Company Number: 2004104660

PATIENT
  Age: 62 Year
  Sex: Female
  Weight: 92.5338 kg

DRUGS (5)
  1. DILANTIN [Suspect]
     Indication: ILL-DEFINED DISORDER
  2. TOPIRAMATE [Suspect]
     Indication: CONVULSION
     Dosage: 25 MG, ORAL
     Route: 048
  3. ANTI-ASTHMATICS (ANTI-ASTHMATICS) [Concomitant]
  4. ANTIHYPERTENSIVES (ANTIHYPERTENSIVES) [Concomitant]
  5. OXYBUTYNIN CHLORIDE [Concomitant]

REACTIONS (6)
  - BLOOD MAGNESIUM ABNORMAL [None]
  - BLOOD POTASSIUM ABNORMAL [None]
  - DRUG LEVEL CHANGED [None]
  - FALL [None]
  - LABORATORY TEST ABNORMAL [None]
  - SKIN LACERATION [None]
